FAERS Safety Report 9671432 (Version 1)
Quarter: 2013Q4

REPORT INFORMATION
  Report Type: Spontaneous
  Country: US (occurrence: None)
  Receive Date: 20131105
  Receipt Date: 20131105
  Transmission Date: 20140711
  Serious: No
  Sender: FDA-Public Use
  Company Number: None

PATIENT
  Age: 38 Year
  Sex: Female
  Weight: 63.5 kg

DRUGS (1)
  1. PROMETHAZINE [Suspect]
     Dosage: 2-T TEASPOONFULS AS NEEDED
     Route: 048
     Dates: start: 20131021, end: 20131023

REACTIONS (6)
  - Anxiety [None]
  - Tension [None]
  - Feeling jittery [None]
  - Insomnia [None]
  - Abdominal discomfort [None]
  - Drug ineffective [None]
